FAERS Safety Report 7513457-4 (Version None)
Quarter: 2011Q2

REPORT INFORMATION
  Report Type: 
  Country: None (occurrence: None)
  Receive Date: 20110531
  Receipt Date: 20110128
  Transmission Date: 20111010
  Serious: Yes (Hospitalization, Other)
  Sender: FDA-Public Use
  Company Number: US-BAYER-201033734NA

PATIENT
  Age: 22 Year
  Sex: Female
  Weight: 52.608 kg

DRUGS (4)
  1. PROTONIX [Concomitant]
  2. YASMIN [Suspect]
     Indication: CONTRACEPTION
     Dosage: UNK
     Route: 048
     Dates: start: 20080101, end: 20090101
  3. REGLAN [Concomitant]
  4. ORTHO TRI-CYCLEN [Concomitant]

REACTIONS (8)
  - CHOLECYSTITIS CHRONIC [None]
  - CHOLESTEROSIS [None]
  - GALLBLADDER DISORDER [None]
  - GASTRITIS [None]
  - GALLBLADDER INJURY [None]
  - ABDOMINAL PAIN [None]
  - CHOLECYSTITIS [None]
  - EARLY SATIETY [None]
